FAERS Safety Report 23798485 (Version 2)
Quarter: 2024Q2

REPORT INFORMATION
  Report Type: Spontaneous
  Country: JP (occurrence: JP)
  Receive Date: 20240430
  Receipt Date: 20240507
  Transmission Date: 20240716
  Serious: Yes (Hospitalization)
  Sender: FDA-Public Use
  Company Number: JP-PFIZER INC-PV202400055313

PATIENT
  Age: 9 Decade
  Sex: Male

DRUGS (2)
  1. TAFAMIDIS [Suspect]
     Active Substance: TAFAMIDIS
     Indication: Cardiac amyloidosis
     Dosage: 61 MG, DAILY
     Route: 048
  2. SAMSCA [Concomitant]
     Active Substance: TOLVAPTAN
     Dosage: UNK

REACTIONS (3)
  - Postoperative wound infection [Unknown]
  - Thirst [Unknown]
  - Loss of personal independence in daily activities [Unknown]
